FAERS Safety Report 19021548 (Version 3)
Quarter: 2021Q3

REPORT INFORMATION
  Report Type: Spontaneous
  Country: US (occurrence: US)
  Receive Date: 20210317
  Receipt Date: 20210715
  Transmission Date: 20211014
  Serious: No
  Sender: FDA-Public Use
  Company Number: US-BRISTOL-MYERS SQUIBB COMPANY-BMS-2021-026435

PATIENT
  Age: 48 Year
  Sex: Female

DRUGS (1)
  1. SPRYCEL [Suspect]
     Active Substance: DASATINIB
     Indication: THROMBOCYTOPENIA
     Dosage: 80 MILLIGRAM, QD
     Route: 048
     Dates: start: 20161221

REACTIONS (3)
  - Intentional product use issue [Unknown]
  - Feeling abnormal [Unknown]
  - Headache [Unknown]
